FAERS Safety Report 20850414 (Version 1)
Quarter: 2022Q2

REPORT INFORMATION
  Report Type: Spontaneous
  Country: US (occurrence: None)
  Receive Date: 20220518
  Receipt Date: 20220518
  Transmission Date: 20220721
  Serious: No
  Sender: FDA-Public Use
  Company Number: None

PATIENT
  Age: 69 Year
  Sex: Female
  Weight: 68.4 kg

DRUGS (16)
  1. PAXLOVID [Suspect]
     Active Substance: NIRMATRELVIR\RITONAVIR
     Indication: COVID-19
     Dosage: FREQUENCY : TWICE A DAY;?
     Route: 048
     Dates: start: 20220508, end: 20220512
  2. IRBESARTAN [Concomitant]
     Active Substance: IRBESARTAN
  3. METOPROLOL SUCCINATE [Concomitant]
     Active Substance: METOPROLOL SUCCINATE
  4. SYNTHROID [Concomitant]
     Active Substance: LEVOTHYROXINE SODIUM
  5. CLONAZEPAM [Concomitant]
     Active Substance: CLONAZEPAM
  6. FYAVOLV [Concomitant]
     Active Substance: ETHINYL ESTRADIOL\NORETHINDRONE ACETATE
  7. METAXALONE [Concomitant]
     Active Substance: METAXALONE
  8. VITAMIN D [Concomitant]
     Active Substance: VITAMIN D NOS
  9. ZOLPIDEM [Concomitant]
     Active Substance: ZOLPIDEM TARTRATE
  10. TYLENOL [Concomitant]
     Active Substance: ACETAMINOPHEN
  11. Vitamin C [Concomitant]
  12. VITAMIN E [Concomitant]
     Active Substance: .ALPHA.-TOCOPHEROL
  13. CYANOCOBALAMIN\DEXPANTHENOL\NIACINAMIDE\PYRIDOXINE HYDROCHLORIDE\RIBOF [Concomitant]
     Active Substance: CYANOCOBALAMIN\DEXPANTHENOL\NIACINAMIDE\PYRIDOXINE HYDROCHLORIDE\RIBOFLAVIN 5^-PHOSPHATE SODIUM\THIA
  14. FOLIC ACID [Concomitant]
  15. BIOTIN [Concomitant]
     Active Substance: BIOTIN
  16. Calcium mini [Concomitant]

REACTIONS (3)
  - Therapeutic product effect incomplete [None]
  - SARS-CoV-2 test positive [None]
  - Rebound acid hypersecretion [None]

NARRATIVE: CASE EVENT DATE: 20220516
